FAERS Safety Report 5573946-9 (Version None)
Quarter: 2007Q4

REPORT INFORMATION
  Report Type: 
  Country: None (occurrence: None)
  Receive Date: 20071220
  Receipt Date: 20071210
  Transmission Date: 20080405
  Serious: Yes (Life-Threatening, Hospitalization)
  Sender: FDA-Public Use
  Company Number: 20074343

PATIENT
  Sex: Male

DRUGS (1)
  1. LIORESAL [Suspect]
     Indication: MUSCLE SPASTICITY
     Dosage: 400-800 MCG, DAILY, INTRATHECAL
     Route: 037

REACTIONS (4)
  - DEVICE FAILURE [None]
  - INCORRECT DOSE ADMINISTERED [None]
  - OVERDOSE [None]
  - UNRESPONSIVE TO STIMULI [None]
